FAERS Safety Report 9445964 (Version 2)
Quarter: 2013Q4

REPORT INFORMATION
  Report Type: Spontaneous
  Country: IT (occurrence: FR)
  Receive Date: 20130807
  Receipt Date: 20131022
  Transmission Date: 20140711
  Serious: Yes (Life-Threatening, Hospitalization)
  Sender: FDA-Public Use
  Company Number: FR-FRI-1000047559

PATIENT
  Age: 74 Year
  Sex: Female

DRUGS (10)
  1. NEBIVOLOL [Suspect]
     Indication: ATRIAL FIBRILLATION
     Dosage: 5 MG
     Route: 048
     Dates: end: 201306
  2. AMIODARONE [Suspect]
     Indication: ATRIAL FIBRILLATION
     Route: 048
     Dates: end: 201306
  3. VANCOMYCINE [Suspect]
     Indication: STAPHYLOCOCCAL INFECTION
     Dates: start: 20130615
  4. GENTAMYCINE [Suspect]
     Dates: start: 20130615, end: 20130618
  5. KALEORID [Concomitant]
     Route: 048
  6. FOSAVANCE [Concomitant]
     Route: 048
  7. UVEDOSE [Concomitant]
     Route: 048
  8. PREVISCAN [Concomitant]
     Route: 048
  9. CLAFORAN [Concomitant]
     Indication: STAPHYLOCOCCAL INFECTION
     Dates: start: 20130615, end: 20130617
  10. TAZOCILLINE [Concomitant]
     Indication: STAPHYLOCOCCAL INFECTION
     Dates: start: 20130617, end: 20130618

REACTIONS (4)
  - Cardiogenic shock [Recovered/Resolved with Sequelae]
  - Cardiac failure [Recovering/Resolving]
  - Overdose [Recovered/Resolved]
  - Renal failure acute [Not Recovered/Not Resolved]
